FAERS Safety Report 8145532-8 (Version None)
Quarter: 2012Q1

REPORT INFORMATION
  Report Type: 
  Country: None (occurrence: None)
  Receive Date: 20120217
  Receipt Date: 20110519
  Transmission Date: 20120608
  Serious: Yes (Hospitalization)
  Sender: FDA-Public Use
  Company Number: US-ABBOTT-11P-163-0719332-00

PATIENT
  Sex: Female
  Weight: 81.72 kg

DRUGS (6)
  1. LEVOTHYROXINE SODIUM [Concomitant]
     Indication: PRODUCT USED FOR UNKNOWN INDICATION
  2. PREVACID [Concomitant]
     Indication: PRODUCT USED FOR UNKNOWN INDICATION
  3. SERTRALINE HYDROCHLORIDE [Concomitant]
     Indication: ANXIETY
  4. SIMCOR [Suspect]
     Indication: PRODUCT USED FOR UNKNOWN INDICATION
     Dosage: 500/20MG DAILY
     Dates: start: 20101001
  5. TRICOR [Suspect]
     Indication: BLOOD CHOLESTEROL
     Dates: start: 20090101, end: 20090101
  6. LIO THYROXINE [Concomitant]
     Indication: PRODUCT USED FOR UNKNOWN INDICATION

REACTIONS (4)
  - MYALGIA [None]
  - FLUSHING [None]
  - PRURITUS [None]
  - URTICARIA [None]
